FAERS Safety Report 5799676-6 (Version None)
Quarter: 2008Q3

REPORT INFORMATION
  Report Type: 
  Country: None (occurrence: None)
  Receive Date: 20080703
  Receipt Date: 20080623
  Transmission Date: 20090109
  Serious: Yes (Other)
  Sender: FDA-Public Use
  Company Number: GR-ABBOTT-08P-066-0460239-00

PATIENT
  Age: 53 Year
  Sex: Female

DRUGS (2)
  1. VALPROATE SODIUM [Suspect]
     Indication: PARTIAL SEIZURES
     Dosage: NOT REPORTED
  2. VALPROATE SODIUM [Suspect]
     Indication: MENINGIOMA

REACTIONS (5)
  - AGITATION [None]
  - CONFUSIONAL STATE [None]
  - DELUSION [None]
  - DRUG INEFFECTIVE [None]
  - PARTIAL SEIZURES [None]
